FAERS Safety Report 9274728 (Version 1)
Quarter: 2013Q2

REPORT INFORMATION
  Report Type: Spontaneous
  Country: US (occurrence: None)
  Receive Date: 20130429
  Receipt Date: 20130429
  Transmission Date: 20140414
  Serious: Yes (Hospitalization)
  Sender: FDA-Public Use
  Company Number: ACO_35689_2013

PATIENT
  Age: 65 Year
  Sex: Female

DRUGS (2)
  1. AMPYRA (DALFAMPRIDINE) TABLET, 10MG [Suspect]
     Indication: PRODUCT USED FOR UNKNOWN INDICATION
     Dosage: Q 12 HRS
  2. AVONEX (INTERFERON BETA-1A) [Concomitant]

REACTIONS (1)
  - Calcium intoxication [None]
